FAERS Safety Report 10452484 (Version 2)
Quarter: 2014Q4

REPORT INFORMATION
  Report Type: Spontaneous
  Country: US (occurrence: US)
  Receive Date: 20140915
  Receipt Date: 20141009
  Transmission Date: 20150528
  Serious: Yes (Hospitalization)
  Sender: FDA-Public Use
  Company Number: US-MYLAN-2014M1004078

PATIENT

DRUGS (13)
  1. PEPTOBISMOL [Concomitant]
     Dosage: UNK
  2. PERFOROMIST [Suspect]
     Active Substance: FORMOTEROL FUMARATE DIHYDRATE
     Indication: CHRONIC OBSTRUCTIVE PULMONARY DISEASE
     Dosage: 20 ?G, BID
     Route: 055
     Dates: start: 201307, end: 201408
  3. BUDESONIDE. [Concomitant]
     Active Substance: BUDESONIDE
     Dosage: UNK
  4. LORAZEPAM. [Concomitant]
     Active Substance: LORAZEPAM
     Indication: NERVOUSNESS
     Dosage: UNK
  5. PERFOROMIST [Suspect]
     Active Substance: FORMOTEROL FUMARATE DIHYDRATE
     Indication: ASTHMA
  6. VIVELLE                            /00045401/ [Concomitant]
     Indication: HORMONE REPLACEMENT THERAPY
     Dosage: UNK, CHANGES TWICE WEEKLY
  7. LEVALBUTEROL                       /01419301/ [Concomitant]
     Dosage: UNK
  8. HYDROXYZINE [Concomitant]
     Active Substance: HYDROXYZINE\HYDROXYZINE HYDROCHLORIDE
     Dosage: UNK, Q3D
  9. PERFOROMIST [Suspect]
     Active Substance: FORMOTEROL FUMARATE DIHYDRATE
     Indication: BRONCHITIS CHRONIC
  10. ANTACID                            /00018101/ [Concomitant]
     Dosage: UNK
  11. GABAPENTIN. [Concomitant]
     Active Substance: GABAPENTIN
     Indication: NERVOUSNESS
     Dosage: UNK
  12. PERFOROMIST [Suspect]
     Active Substance: FORMOTEROL FUMARATE DIHYDRATE
     Indication: EMPHYSEMA
     Dosage: 20 ?G, UNK
     Route: 055
     Dates: start: 20140904, end: 20140905
  13. PERFOROMIST [Suspect]
     Active Substance: FORMOTEROL FUMARATE DIHYDRATE
     Indication: PLEURISY

REACTIONS (6)
  - Agitation [Not Recovered/Not Resolved]
  - Asthma [Not Recovered/Not Resolved]
  - Joint swelling [Not Recovered/Not Resolved]
  - Tachycardia [Not Recovered/Not Resolved]
  - Bronchospasm [Not Recovered/Not Resolved]
  - Asthenia [Not Recovered/Not Resolved]

NARRATIVE: CASE EVENT DATE: 201307
